FAERS Safety Report 8845276 (Version 1)
Quarter: 2012Q4

REPORT INFORMATION
  Report Type: Spontaneous
  Country: US (occurrence: None)
  Receive Date: 20121016
  Receipt Date: 20121016
  Transmission Date: 20130627
  Serious: No
  Sender: FDA-Public Use
  Company Number: None

PATIENT
  Age: 55 Year
  Sex: Male
  Weight: 70.9 kg

DRUGS (1)
  1. CALCITONIN [Suspect]
     Indication: BONE DISORDER
     Route: 045
     Dates: start: 20120604, end: 20120616

REACTIONS (1)
  - Angioedema [None]
